FAERS Safety Report 6654777-5 (Version None)
Quarter: 2010Q1

REPORT INFORMATION
  Report Type: 
  Country: None (occurrence: None)
  Receive Date: 20100328
  Receipt Date: 20100323
  Transmission Date: 20100710
  Serious: Yes (Other)
  Sender: FDA-Public Use
  Company Number: JP-BRISTOL-MYERS SQUIBB COMPANY-15018260

PATIENT
  Age: 52 Year
  Sex: Female

DRUGS (3)
  1. IRBETAN [Suspect]
     Indication: HYPERTENSION
     Dosage: FORMULATION :TAB
     Route: 048
     Dates: start: 20091212, end: 20100130
  2. AMLODIPINE [Suspect]
     Indication: HYPERTENSION
     Route: 048
     Dates: start: 20091128
  3. EPADEL [Suspect]
     Indication: DYSLIPIDAEMIA
     Route: 048
     Dates: start: 20100105

REACTIONS (4)
  - AGEUSIA [None]
  - ANOSMIA [None]
  - BRONCHITIS [None]
  - UPPER RESPIRATORY TRACT INFLAMMATION [None]
